FAERS Safety Report 25989907 (Version 1)
Quarter: 2025Q4

REPORT INFORMATION
  Report Type: Spontaneous
  Country: US (occurrence: None)
  Receive Date: 20251031
  Receipt Date: 20251031
  Transmission Date: 20260117
  Serious: Yes (Other)
  Sender: FDA-CTU
  Company Number: None

PATIENT
  Age: 46 Year
  Sex: Male
  Weight: 96.2 kg

DRUGS (1)
  1. DUPIXENT [Suspect]
     Active Substance: DUPILUMAB
     Indication: Eosinophilic oesophagitis
     Dosage: FREQUENCY : WEEKLY;?
     Route: 058
     Dates: start: 20250630, end: 20250901

REACTIONS (5)
  - Rash [None]
  - Urticaria [None]
  - Erythema migrans [None]
  - Rash [None]
  - Rash macular [None]

NARRATIVE: CASE EVENT DATE: 20250901
